FAERS Safety Report 5662896-5 (Version None)
Quarter: 2008Q1

REPORT INFORMATION
  Report Type: 
  Country: None (occurrence: None)
  Receive Date: 20080311
  Receipt Date: 20080311
  Transmission Date: 20080703
  Serious: Yes (Death)
  Sender: FDA-Public Use
  Company Number: None

PATIENT
  Age: 19 Year
  Sex: Female
  Weight: 65 kg

DRUGS (12)
  1. CELEXA [Suspect]
     Indication: DEPRESSION
     Dosage: 40 MG 1 PER DAY BUCCAL
     Route: 002
     Dates: start: 20060503, end: 20060930
  2. ZYPREXA [Suspect]
     Indication: DEPRESSION
     Dosage: 10 MG 1 PER DAY BUCCAL
     Route: 002
     Dates: start: 20060503, end: 20060930
  3. STATEX [Concomitant]
  4. VIOXX [Concomitant]
  5. APO-DIAZEPAM [Concomitant]
  6. APO AMITRIPTYLINE [Concomitant]
  7. ATIVAN [Concomitant]
  8. HALDOL [Concomitant]
  9. SEROQUEL [Concomitant]
  10. ZYPREXA ZIDIS [Concomitant]
  11. CELEXA [Concomitant]
  12. PMS-BENZTROPINE [Concomitant]

REACTIONS (5)
  - ASPHYXIA [None]
  - COMPLETED SUICIDE [None]
  - DISEASE RECURRENCE [None]
  - INAPPROPRIATE SCHEDULE OF DRUG ADMINISTRATION [None]
  - TREATMENT NONCOMPLIANCE [None]
